FAERS Safety Report 5227986-X (Version None)
Quarter: 2007Q1

REPORT INFORMATION
  Report Type: 
  Country: None (occurrence: None)
  Receive Date: 20061206
  Receipt Date: 20060315
  Transmission Date: 20070707
  Serious: Yes (Other)
  Sender: FDA-Public Use
  Company Number: 440489

PATIENT
  Age: 26 Year
  Sex: Male
  Weight: 139.3 kg

DRUGS (5)
  1. VALIUM [Suspect]
     Indication: MUSCLE SPASMS
     Dosage: 5 MG 4 PER DAY ORAL
     Route: 048
     Dates: start: 20060227
  2. GLEEVEC [Suspect]
     Indication: CHRONIC MYELOID LEUKAEMIA
     Dosage: ORAL
     Route: 048
     Dates: start: 20050728
  3. SOMA [Concomitant]
  4. FLEXERIL [Concomitant]
  5. IBUPROFEN [Concomitant]

REACTIONS (2)
  - DRUG INEFFECTIVE [None]
  - NO THERAPEUTIC RESPONSE [None]
